FAERS Safety Report 12981334 (Version 1)
Quarter: 2016Q4

REPORT INFORMATION
  Report Type: Spontaneous
  Country: US (occurrence: US)
  Receive Date: 20161129
  Receipt Date: 20161129
  Transmission Date: 20170207
  Serious: Yes (Hospitalization)
  Sender: FDA-Public Use
  Company Number: US-ASTRAZENECA-2016SF24111

PATIENT
  Age: 27610 Day
  Sex: Male
  Weight: 104.3 kg

DRUGS (21)
  1. BACTROBAN [Concomitant]
     Active Substance: MUPIROCIN\MUPIROCIN CALCIUM
     Indication: WOUND
     Dosage: ONE APPLICATION TWICE A DAY
     Route: 061
  2. TRAMADOL. [Concomitant]
     Active Substance: TRAMADOL
     Indication: PAIN
     Dosage: ONE TABLET, EVERY SIX HOURS AS NEEDED
     Route: 048
  3. INSULIN [Concomitant]
     Active Substance: INSULIN NOS
     Dosage: SIX UNIT THREE TIMES A DAY AND 2-6 UNIT SLIDING SCALE WITH MEALS THREE TIMES A DAY BEFORE MEALS
     Route: 058
  4. GABAPENTIN. [Concomitant]
     Active Substance: GABAPENTIN
     Route: 048
  5. BUMETANIDE. [Concomitant]
     Active Substance: BUMETANIDE
     Dosage: ONE TABLET WEEKLY ON FRIDAY
     Route: 048
  6. TORSEMIDE. [Concomitant]
     Active Substance: TORSEMIDE
     Route: 048
  7. LACTULOSE. [Concomitant]
     Active Substance: LACTULOSE
     Dosage: 20 MG/30 ML; 30 ML TWO TIMES A DAY
     Route: 048
  8. ASPIRIN. [Concomitant]
     Active Substance: ASPIRIN
     Route: 048
  9. SPIRONOLACTONE. [Concomitant]
     Active Substance: SPIRONOLACTONE
     Route: 048
  10. ELIQUIS [Suspect]
     Active Substance: APIXABAN
     Route: 048
  11. PREDNISONE. [Concomitant]
     Active Substance: PREDNISONE
     Dosage: 1.5 TABLET AS DIRECTED
     Route: 048
  12. KLOR-CON [Concomitant]
     Active Substance: POTASSIUM CHLORIDE
     Route: 048
  13. XIFAXAN [Concomitant]
     Active Substance: RIFAXIMIN
     Route: 048
  14. CEFDINIR. [Concomitant]
     Active Substance: CEFDINIR
     Route: 048
  15. OMEPRAZOLE. [Suspect]
     Active Substance: OMEPRAZOLE
     Route: 048
  16. GEMFIBROZIL. [Concomitant]
     Active Substance: GEMFIBROZIL
     Route: 048
  17. METOLAZONE. [Concomitant]
     Active Substance: METOLAZONE
     Dosage: ONE TABLET EVERY FRIDAY
     Route: 048
  18. TOPROL XL [Suspect]
     Active Substance: METOPROLOL SUCCINATE
     Route: 048
  19. TIKOSYN [Suspect]
     Active Substance: DOFETILIDE
     Route: 048
  20. ISOSORBIDE MONONITRATE. [Concomitant]
     Active Substance: ISOSORBIDE MONONITRATE
     Route: 048
  21. ACETAMINOPHEN, CODEINE [Concomitant]
     Dosage: 300/30 MG EVENRY FOUR HOURS
     Route: 048

REACTIONS (5)
  - Dyspnoea [Unknown]
  - Drug hypersensitivity [Not Recovered/Not Resolved]
  - Herpes zoster [Unknown]
  - Hepatic encephalopathy [Unknown]
  - Mental status changes [Recovered/Resolved]

NARRATIVE: CASE EVENT DATE: 20161018
